FAERS Safety Report 11252555 (Version 1)
Quarter: 2015Q3

REPORT INFORMATION
  Report Type: Spontaneous
  Country: US (occurrence: US)
  Receive Date: 20150708
  Receipt Date: 20150708
  Transmission Date: 20151125
  Serious: No
  Sender: FDA-Public Use
  Company Number: US-GLAXOSMITHKLINE-US2015GSK096998

PATIENT
  Age: 42 Year
  Sex: Female

DRUGS (1)
  1. TANZEUM [Suspect]
     Active Substance: ALBIGLUTIDE
     Indication: TYPE 2 DIABETES MELLITUS
     Dosage: 50 MG, WE
     Route: 042
     Dates: start: 20150602

REACTIONS (7)
  - Throat irritation [Unknown]
  - Cough [Unknown]
  - Rash erythematous [Unknown]
  - Rash pruritic [Unknown]
  - Back pain [Unknown]
  - Rash [Unknown]
  - Influenza like illness [Unknown]

NARRATIVE: CASE EVENT DATE: 201506
